FAERS Safety Report 15464571 (Version 2)
Quarter: 2018Q4

REPORT INFORMATION
  Report Type: Spontaneous
  Country: US (occurrence: US)
  Receive Date: 20181004
  Receipt Date: 20181004
  Transmission Date: 20190204
  Serious: No
  Sender: FDA-Public Use
  Company Number: US-MELINTA-US-MLNT-18-00230

PATIENT
  Sex: Female

DRUGS (1)
  1. ORBACTIV [Suspect]
     Active Substance: ORITAVANCIN
     Indication: OSTEOMYELITIS
     Route: 041

REACTIONS (6)
  - Nausea [Unknown]
  - Blood pressure increased [Unknown]
  - Blood glucose increased [Unknown]
  - Erythema [Unknown]
  - Headache [Unknown]
  - Off label use [Unknown]
